FAERS Safety Report 11284363 (Version 2)
Quarter: 2015Q3

REPORT INFORMATION
  Report Type: Spontaneous
  Country: IT (occurrence: IT)
  Receive Date: 20150720
  Receipt Date: 20150806
  Transmission Date: 20151125
  Serious: Yes (Hospitalization)
  Sender: FDA-Public Use
  Company Number: IT-BAYER-2015-377332

PATIENT
  Age: 93 Year
  Sex: Female

DRUGS (5)
  1. PRAZENE [Concomitant]
     Active Substance: PRAZEPAM
  2. PLASIL [Concomitant]
     Active Substance: METOCLOPRAMIDE HYDROCHLORIDE
  3. TALOFEN [Concomitant]
     Active Substance: PROMAZINE HYDROCHLORIDE
  4. CARDIOASPIRIN [Suspect]
     Active Substance: ASPIRIN
     Dosage: UNK
     Dates: start: 20140406, end: 20150406
  5. LASITONE [Concomitant]
     Active Substance: FUROSEMIDE\SPIRONOLACTONE

REACTIONS (3)
  - Rectal haemorrhage [Recovered/Resolved]
  - Melaena [Recovered/Resolved]
  - Haemorrhagic anaemia [Recovered/Resolved]

NARRATIVE: CASE EVENT DATE: 20150405
